FAERS Safety Report 12613630 (Version 1)
Quarter: 2016Q3

REPORT INFORMATION
  Report Type: Spontaneous
  Country: US (occurrence: None)
  Receive Date: 20160801
  Receipt Date: 20160801
  Transmission Date: 20161109
  Serious: No
  Sender: FDA-Public Use
  Company Number: None

PATIENT
  Age: 53 Year
  Sex: Female
  Weight: 51.26 kg

DRUGS (6)
  1. SERTRALINE [Concomitant]
     Active Substance: SERTRALINE HYDROCHLORIDE
  2. MULTI VITAMIN [Concomitant]
     Active Substance: VITAMINS
  3. PRIMIDONE. [Suspect]
     Active Substance: PRIMIDONE
     Indication: TREMOR
     Route: 048
     Dates: start: 20160727, end: 20160727
  4. AMITRIPTYLINE [Concomitant]
     Active Substance: AMITRIPTYLINE
  5. CHEWABLE CALCIUM [Concomitant]
  6. PROPRANOLOL [Concomitant]
     Active Substance: PROPRANOLOL\PROPRANOLOL HYDROCHLORIDE

REACTIONS (13)
  - Dizziness [None]
  - Balance disorder [None]
  - Chest pain [None]
  - Diplopia [None]
  - Somnolence [None]
  - Asthenia [None]
  - Heart rate increased [None]
  - Headache [None]
  - Vision blurred [None]
  - Nausea [None]
  - Fatigue [None]
  - Disturbance in attention [None]
  - Visual impairment [None]

NARRATIVE: CASE EVENT DATE: 20160728
